FAERS Safety Report 10082967 (Version 1)
Quarter: 2014Q2

REPORT INFORMATION
  Report Type: Spontaneous
  Country: SK (occurrence: SK)
  Receive Date: 20140417
  Receipt Date: 20140417
  Transmission Date: 20141212
  Serious: Yes (Other)
  Sender: FDA-Public Use
  Company Number: SK-PFIZER INC-2014104583

PATIENT
  Age: 63 Year
  Sex: Female

DRUGS (1)
  1. XALKORI [Suspect]
     Indication: LUNG ADENOCARCINOMA
     Dosage: UNK
     Dates: start: 201308

REACTIONS (7)
  - Leukopenia [Unknown]
  - Neutropenia [Unknown]
  - Lymphopenia [Unknown]
  - Liver function test abnormal [Unknown]
  - Decreased appetite [Unknown]
  - Diarrhoea [Unknown]
  - Diplopia [Unknown]
